FAERS Safety Report 4554453-9 (Version None)
Quarter: 2004Q4

REPORT INFORMATION
  Report Type: 
  Country: None (occurrence: None)
  Receive Date: 20041221
  Receipt Date: 20041208
  Transmission Date: 20050328
  Serious: No
  Sender: FDA-Public Use
  Company Number: 2004UW24334

PATIENT
  Age: 54 Year
  Sex: Male

DRUGS (3)
  1. CRESTOR [Suspect]
     Indication: DYSLIPIDAEMIA
     Dosage: 10 MG DAILY
     Dates: start: 20041001, end: 20041111
  2. ASPIRIN [Concomitant]
  3. AVANDAMET [Concomitant]

REACTIONS (2)
  - HEPATITIS [None]
  - RHABDOMYOLYSIS [None]
